FAERS Safety Report 17624343 (Version 1)
Quarter: 2020Q2

REPORT INFORMATION
  Report Type: Spontaneous
  Country: PT (occurrence: PT)
  Receive Date: 20200403
  Receipt Date: 20200403
  Transmission Date: 20200713
  Serious: Yes (Hospitalization)
  Sender: FDA-Public Use
  Company Number: PT-JUBILANT CADISTA PHARMACEUTICALS-2020JUB00117

PATIENT
  Age: 58 Year
  Sex: Male

DRUGS (4)
  1. HIDANTINE [Concomitant]
     Dosage: 300 MG, 1X/DAY
     Route: 065
  2. LEVETIRACETAM. [Suspect]
     Active Substance: LEVETIRACETAM
     Dosage: 2000 MG, 1X/DAY
     Route: 065
  3. PHENOBARBITAL. [Concomitant]
     Active Substance: PHENOBARBITAL
     Dosage: 100 MG
     Route: 065
  4. LEVETIRACETAM. [Suspect]
     Active Substance: LEVETIRACETAM
     Indication: EPILEPSY
     Dosage: 3250 MG, 1X/DAY
     Route: 065

REACTIONS (1)
  - Mania [Recovered/Resolved]
